FAERS Safety Report 7008673-4 (Version None)
Quarter: 2010Q3

REPORT INFORMATION
  Report Type: 
  Country: None (occurrence: None)
  Receive Date: 20100921
  Receipt Date: 20100901
  Transmission Date: 20110219
  Serious: Yes (Hospitalization)
  Sender: FDA-Public Use
  Company Number: APP201000721

PATIENT
  Age: 42 Year
  Sex: Female

DRUGS (9)
  1. VINBLASTINE SULFATE [Suspect]
     Indication: HODGKIN'S DISEASE
     Dosage: CYCLE 1A
  2. DOXORUBICIN HCL [Suspect]
     Indication: HODGKIN'S DISEASE
     Dosage: 5 CYCLES TOAL
  3. BLEOMYCIN SULFATE [Suspect]
     Indication: HODGKIN'S DISEASE
     Dosage: 5 CYCLES TOTAL
  4. DACARBAZINE [Suspect]
     Indication: HODGKIN'S DISEASE
     Dosage: 5 CYCLES TOTAL
  5. TENOFOVIR DISOPROXIL FUMARATE [Concomitant]
  6. EMTRICITABINE [Concomitant]
  7. LOPINAVIR (LOPINAVIR) [Concomitant]
  8. RITONAVIR [Concomitant]
  9. TRIMETHOPRIM [Concomitant]

REACTIONS (5)
  - ILEUS [None]
  - INTESTINAL OBSTRUCTION [None]
  - NEUTROPENIA [None]
  - PNEUMONITIS [None]
  - PYREXIA [None]
